FAERS Safety Report 13998538 (Version 2)
Quarter: 2017Q4

REPORT INFORMATION
  Report Type: Report from Study
  Country: US (occurrence: US)
  Receive Date: 20170921
  Receipt Date: 20171030
  Transmission Date: 20180321
  Serious: Yes (Hospitalization, Other)
  Sender: FDA-Public Use
  Company Number: US-GILEAD-2017-0294372

PATIENT
  Age: 60 Year
  Sex: Male

DRUGS (1)
  1. RANOLAZINE. [Suspect]
     Active Substance: RANOLAZINE
     Indication: ANGINA PECTORIS
     Dosage: 1000 MG, UNK
     Route: 048
     Dates: start: 2012

REACTIONS (8)
  - Asthenia [Unknown]
  - Vascular graft [Unknown]
  - Angina pectoris [Not Recovered/Not Resolved]
  - Flatulence [Unknown]
  - Prostate cancer recurrent [Unknown]
  - Prostate cancer [Not Recovered/Not Resolved]
  - Gastroenteritis viral [Unknown]
  - Fatigue [Unknown]

NARRATIVE: CASE EVENT DATE: 201710
